FAERS Safety Report 6468802-8 (Version None)
Quarter: 2009Q4

REPORT INFORMATION
  Report Type: 
  Country: None (occurrence: None)
  Receive Date: 20091203
  Receipt Date: 20071004
  Transmission Date: 20100525
  Serious: Yes (Hospitalization, Other)
  Sender: FDA-Public Use
  Company Number: US-ELI_LILLY_AND_COMPANY-US200609002165

PATIENT
  Sex: Female
  Weight: 85.714 kg

DRUGS (6)
  1. ZYPREXA [Suspect]
     Indication: DEPRESSION
     Dosage: 5 MG, UNK
     Dates: start: 20030724
  2. ZYPREXA [Suspect]
     Dosage: 15 MG, UNK
  3. ZYPREXA [Suspect]
     Dosage: 40 MG, UNK
  4. RISPERDAL [Concomitant]
     Dosage: UNK, UNK
     Dates: start: 20061201
  5. WELLBUTRIN [Concomitant]
     Dates: start: 20040506
  6. EFFEXOR [Concomitant]
     Dates: start: 20030203

REACTIONS (9)
  - BLOOD CHOLESTEROL ABNORMAL [None]
  - BLOOD TRIGLYCERIDES INCREASED [None]
  - GALLBLADDER OPERATION [None]
  - HEPATITIS VIRAL [None]
  - MALIGNANT HYPERTENSION [None]
  - METABOLIC DISORDER [None]
  - OVERDOSE [None]
  - TYPE 2 DIABETES MELLITUS [None]
  - WEIGHT INCREASED [None]
